FAERS Safety Report 21564879 (Version 3)
Quarter: 2023Q1

REPORT INFORMATION
  Report Type: Report from Study
  Country: GB (occurrence: GB)
  Receive Date: 20221108
  Receipt Date: 20230316
  Transmission Date: 20230418
  Serious: Yes (Hospitalization)
  Sender: FDA-Public Use
  Company Number: GB-ABBVIE-4190994

PATIENT
  Age: 38 Year
  Sex: Female

DRUGS (2)
  1. SKYRIZI [Suspect]
     Active Substance: RISANKIZUMAB-RZAA
     Indication: Psoriasis
     Dosage: STRENGTH- 150 MILLIGRAM
     Route: 058
     Dates: start: 2020
  2. SKYRIZI [Suspect]
     Active Substance: RISANKIZUMAB-RZAA
     Dosage: FORM STRENGTH 160 MG
     Route: 058

REACTIONS (6)
  - Hypertension [Recovering/Resolving]
  - Dizziness [Recovering/Resolving]
  - Pain [Recovering/Resolving]
  - Feeling abnormal [Recovering/Resolving]
  - Stress [Recovering/Resolving]
  - Dry mouth [Recovered/Resolved]

NARRATIVE: CASE EVENT DATE: 20220101
